FAERS Safety Report 5709415-2 (Version None)
Quarter: 2008Q2

REPORT INFORMATION
  Report Type: 
  Country: None (occurrence: None)
  Receive Date: 20080417
  Receipt Date: 20080417
  Transmission Date: 20081010
  Serious: No
  Sender: FDA-Public Use
  Company Number: None

PATIENT
  Age: 32 Year
  Sex: Male

DRUGS (2)
  1. CLOMIPRAMINE HCL [Suspect]
  2. FLUVOXAMINE MALEATE [Suspect]

REACTIONS (1)
  - MYOCLONUS [None]
